FAERS Safety Report 5308427-0 (Version None)
Quarter: 2007Q2

REPORT INFORMATION
  Report Type: 
  Country: None (occurrence: None)
  Receive Date: 20070426
  Receipt Date: 20070416
  Transmission Date: 20071010
  Serious: Yes (Death)
  Sender: FDA-Public Use
  Company Number: US-ABBOTT-06P-163-0344760-00

PATIENT
  Sex: Male
  Weight: 80.3 kg

DRUGS (2)
  1. HUMIRA [Suspect]
     Indication: RHEUMATOID ARTHRITIS
     Route: 058
     Dates: end: 20060721
  2. HUMIRA [Suspect]
     Route: 058
     Dates: start: 20050512

REACTIONS (5)
  - AORTIC ANEURYSM [None]
  - COAGULOPATHY [None]
  - HAEMORRHAGE [None]
  - PROCEDURAL COMPLICATION [None]
  - RHEUMATOID ARTHRITIS [None]
